FAERS Safety Report 4918304-2 (Version None)
Quarter: 2006Q1

REPORT INFORMATION
  Report Type: 
  Country: None (occurrence: None)
  Receive Date: 20060215
  Receipt Date: 20060130
  Transmission Date: 20060701
  Serious: Yes (Hospitalization)
  Sender: FDA-Public Use
  Company Number: TRP_0702_2006

PATIENT
  Age: 56 Year
  Sex: Male
  Weight: 99.7913 kg

DRUGS (15)
  1. RIBASPHERE/RIBAVIRIN/THREE RIVERS PHARMA/200MG [Suspect]
     Indication: HEPATITIS C
     Dosage: 600 MG BID PO
     Route: 048
     Dates: start: 20050527, end: 20051019
  2. PEG-INTRON [Suspect]
     Indication: HEPATITIS C
     Dosage: 150 MCG QWK SC
     Route: 058
     Dates: start: 20050527, end: 20051019
  3. ADVAIR DISKUS 100/50 [Concomitant]
  4. ALBUTEROL [Concomitant]
  5. BUPROPION HYDROCHLORIDE SUSTAINED RELEASE [Concomitant]
  6. PEG-INTRON [Suspect]
     Indication: HEPATITIS C
     Dosage: 150 MG QWK SC
     Route: 058
     Dates: start: 20051207, end: 20051222
  7. RIBASPHERE/RIBAVIRIN/THREE RIVERS PHARMA/200 MG [Suspect]
     Indication: HEPATITIS C
     Dosage: 600 MG BID PO
     Route: 048
     Dates: start: 20051207, end: 20051222
  8. PEG-INTRON [Suspect]
     Indication: HEPATITIS C
     Dosage: 150 MCG QWK SC
     Route: 058
     Dates: start: 20051207, end: 20051222
  9. RIBASPHERE/RIBAVIRIN/THREE RIVERS PHARMA/200 MG [Suspect]
     Indication: HEPATITIS C
     Dosage: 600 MG QDAY PO
     Route: 048
     Dates: start: 20060130
  10. PEG-INTRON [Suspect]
     Indication: HEPATITIS C
     Dosage: 120 MCG QWK SC
     Route: 058
     Dates: start: 20060130
  11. DICYCLOMINE HYDROCHLORIDE [Concomitant]
  12. DUBONEB/ (IPRATROPIUM BROMIDE/ ALUTEROL SULFATE) [Concomitant]
  13. FOLIC ACID [Concomitant]
  14. PRILOSEC [Concomitant]
  15. SEROQUEL [Concomitant]

REACTIONS (8)
  - AMMONIA INCREASED [None]
  - ANAEMIA [None]
  - CONDITION AGGRAVATED [None]
  - NAUSEA [None]
  - PANCYTOPENIA [None]
  - PYREXIA [None]
  - VOMITING [None]
  - WEIGHT DECREASED [None]
